FAERS Safety Report 5064882-5 (Version None)
Quarter: 2006Q3

REPORT INFORMATION
  Report Type: 
  Country: None (occurrence: None)
  Receive Date: 20060726
  Receipt Date: 20060712
  Transmission Date: 20061208
  Serious: Yes (Hospitalization)
  Sender: FDA-Public Use
  Company Number: 2006PV017467

PATIENT
  Age: 27 Year
  Sex: Female
  Weight: 144.6975 kg

DRUGS (11)
  1. BYETTA [Suspect]
     Indication: DRUG USE FOR UNKNOWN INDICATION
     Dosage: 5 MCG; BID; SC
     Route: 058
     Dates: start: 20060301, end: 20060526
  2. BYETTA [Suspect]
     Indication: DRUG USE FOR UNKNOWN INDICATION
     Dosage: 5 MCG; BID; SC
     Route: 058
     Dates: start: 20060101
  3. ASPIRIN [Concomitant]
  4. CENTRUM [Concomitant]
  5. ACTOS [Concomitant]
  6. CLARITIN [Concomitant]
  7. TRIAMTERENE AND HYDROCHLOROTHIAZIDE [Concomitant]
  8. PREVACID [Concomitant]
  9. KLONOPIN [Concomitant]
  10. SINGULAIR [Concomitant]
  11. ALBUTEROL SPIROS [Concomitant]

REACTIONS (12)
  - ARRHYTHMIA [None]
  - ASTHENIA [None]
  - CHEST PAIN [None]
  - HYPERHIDROSIS [None]
  - HYPOAESTHESIA [None]
  - INJECTION SITE BRUISING [None]
  - LETHARGY [None]
  - LOSS OF CONSCIOUSNESS [None]
  - LOWER RESPIRATORY TRACT INFECTION [None]
  - MUSCLE SPASMS [None]
  - ORAL FUNGAL INFECTION [None]
  - TONSILLITIS [None]
